FAERS Safety Report 8758750 (Version 2)
Quarter: 2012Q4

REPORT INFORMATION
  Report Type: Spontaneous
  Country: US (occurrence: None)
  Receive Date: 20120810
  Receipt Date: 20120910
  Transmission Date: 20130627
  Serious: Yes (Other)
  Sender: FDA-Public Use
  Company Number: 2012032928

PATIENT
  Sex: Male
  Weight: 86.18 kg

DRUGS (5)
  1. HIZENTRA [Suspect]
     Indication: IMMUNODEFICIENCY COMMON VARIABLE
     Dosage: 5 SITES
     Route: 058
  2. PREDNISONE (PREDNISONE) [Concomitant]
  3. DICLOFENAC (DICLOFENAC) [Concomitant]
  4. PROTONIX (PANTOPRAZOLE) [Concomitant]
  5. VYTORIN (INEGY) [Concomitant]

REACTIONS (10)
  - Deep vein thrombosis [None]
  - White blood cell count decreased [None]
  - Aspartate aminotransferase increased [None]
  - Pain [None]
  - Headache [None]
  - Infusion site swelling [None]
  - Protein C decreased [None]
  - Protein S decreased [None]
  - Rhinitis [None]
  - Dehydration [None]
